FAERS Safety Report 6666311-4 (Version None)
Quarter: 2010Q2

REPORT INFORMATION
  Report Type: 
  Country: None (occurrence: None)
  Receive Date: 20100402
  Receipt Date: 20100323
  Transmission Date: 20101027
  Serious: Yes (Other)
  Sender: FDA-Public Use
  Company Number: US-ELI_LILLY_AND_COMPANY-US201003006677

PATIENT
  Age: 60 Year
  Sex: Male

DRUGS (5)
  1. CYMBALTA [Suspect]
     Indication: DEPRESSION
     Dosage: 20 MG, UNK
  2. CYMBALTA [Suspect]
     Dosage: 60 MG, UNK
  3. CYMBALTA [Suspect]
     Dates: end: 20100201
  4. TOPAMAX [Concomitant]
  5. ATIVAN [Concomitant]

REACTIONS (3)
  - BLINDNESS [None]
  - CATARACT [None]
  - RETINAL DETACHMENT [None]
